FAERS Safety Report 7725690-7 (Version None)
Quarter: 2011Q3

REPORT INFORMATION
  Report Type: 
  Country: None (occurrence: None)
  Receive Date: 20110902
  Receipt Date: 20110830
  Transmission Date: 20111222
  Serious: Yes (Death)
  Sender: FDA-Public Use
  Company Number: PHHY2011NZ77155

PATIENT
  Sex: Female

DRUGS (1)
  1. CLOZAPINE [Suspect]
     Indication: SCHIZOPHRENIA
     Dosage: 50 MG MANE, 75 MG NOCTE (TOTAL 125 MG/DAY)
     Dates: start: 20050228

REACTIONS (2)
  - PNEUMONIA [None]
  - RESPIRATORY ARREST [None]
